FAERS Safety Report 4924916-2 (Version None)
Quarter: 2006Q1

REPORT INFORMATION
  Report Type: 
  Country: None (occurrence: None)
  Receive Date: 20060222
  Receipt Date: 20060207
  Transmission Date: 20060701
  Serious: Yes (Other)
  Sender: FDA-Public Use
  Company Number: 216594

PATIENT
  Sex: Female

DRUGS (3)
  1. OMALIZUMAB (OMALIZUMAB) PWDR + SOLVENT, INJECTION SOLN, 150MG [Suspect]
     Indication: ASTHMA
     Dosage: 150 MG, Q4W
     Dates: start: 20041001
  2. ADVAIR DISKUS 100/50 [Concomitant]
  3. FLONASE [Concomitant]

REACTIONS (4)
  - ABORTION SPONTANEOUS [None]
  - ASSISTED FERTILISATION [None]
  - DRUG EXPOSURE DURING PREGNANCY [None]
  - HIGH RISK PREGNANCY [None]
